FAERS Safety Report 23260544 (Version 2)
Quarter: 2023Q4

REPORT INFORMATION
  Report Type: Report from Study
  Country: US (occurrence: US)
  Receive Date: 20231205
  Receipt Date: 20231218
  Transmission Date: 20240110
  Serious: Yes (Other)
  Sender: FDA-Public Use
  Company Number: US-ABBVIE-5186226

PATIENT
  Sex: Female

DRUGS (4)
  1. SKYRIZI [Suspect]
     Active Substance: RISANKIZUMAB-RZAA
     Indication: Crohn^s disease
     Route: 058
     Dates: start: 2023
  2. SKYRIZI [Suspect]
     Active Substance: RISANKIZUMAB-RZAA
     Indication: Crohn^s disease
     Route: 042
     Dates: start: 20230330
  3. OMEPRAZOLE [Concomitant]
     Active Substance: OMEPRAZOLE
     Indication: Product used for unknown indication
  4. OMEPRAZOLE [Concomitant]
     Active Substance: OMEPRAZOLE
     Indication: Product used for unknown indication
     Dosage: INCREASED DOSE

REACTIONS (16)
  - Colon operation [Recovering/Resolving]
  - Muscle disorder [Unknown]
  - Malaise [Unknown]
  - Tendon disorder [Unknown]
  - Diarrhoea [Recovered/Resolved]
  - Tendonitis [Recovering/Resolving]
  - Bursitis [Unknown]
  - Rotator cuff syndrome [Recovering/Resolving]
  - Asthenia [Unknown]
  - Arthropathy [Unknown]
  - Musculoskeletal disorder [Unknown]
  - Gastrooesophageal reflux disease [Recovered/Resolved]
  - Abdominal pain [Unknown]
  - Fall [Unknown]
  - Balance disorder [Unknown]
  - Inner ear disorder [Unknown]

NARRATIVE: CASE EVENT DATE: 20230101
